FAERS Safety Report 14040837 (Version 1)
Quarter: 2017Q4

REPORT INFORMATION
  Report Type: Spontaneous
  Country: US (occurrence: US)
  Receive Date: 20171004
  Receipt Date: 20171004
  Transmission Date: 20180321
  Serious: Yes (Hospitalization)
  Sender: FDA-Public Use
  Company Number: US-ACTELION-A-NJ2017-159967

PATIENT
  Age: 72 Year
  Sex: Female
  Weight: 73.5 kg

DRUGS (28)
  1. LEVALBUTEROL. [Concomitant]
     Active Substance: LEVALBUTEROL
  2. MELOXICAM. [Concomitant]
     Active Substance: MELOXICAM
  3. REVATIO [Concomitant]
     Active Substance: SILDENAFIL CITRATE
     Dosage: 20 MG, TID
     Route: 048
     Dates: start: 2014
  4. BIFIDOBACTERIUM INFANTIS [Concomitant]
  5. METFORMIN [Concomitant]
     Active Substance: METFORMIN HYDROCHLORIDE
  6. METOPROLOL SUCCINATE. [Concomitant]
     Active Substance: METOPROLOL SUCCINATE
  7. MONTELUKAST [Concomitant]
     Active Substance: MONTELUKAST SODIUM
  8. CALCIUM ANTACID [Concomitant]
     Active Substance: CALCIUM CARBONATE
  9. FLUTICASONE PROPIONATE W/SALMETEROL [Concomitant]
     Active Substance: FLUTICASONE PROPIONATE\SALMETEROL XINAFOATE
  10. CHLORPHENIRAMINE W/HYDROCODONE [Concomitant]
  11. OPSUMIT [Suspect]
     Active Substance: MACITENTAN
     Indication: PULMONARY ARTERIAL HYPERTENSION
     Dosage: 10 MG, QD
     Route: 048
     Dates: start: 2017, end: 2017
  12. ASPIRIN. [Concomitant]
     Active Substance: ASPIRIN
  13. EZETIMIBE. [Concomitant]
     Active Substance: EZETIMIBE
  14. TIOTROPIUM [Concomitant]
     Active Substance: TIOTROPIUM
  15. CETIRIZINE [Concomitant]
     Active Substance: CETIRIZINE HYDROCHLORIDE
  16. FUROSEMIDE. [Concomitant]
     Active Substance: FUROSEMIDE
  17. OMEPRAZOLE. [Concomitant]
     Active Substance: OMEPRAZOLE
  18. SPIRONOLACTONE. [Concomitant]
     Active Substance: SPIRONOLACTONE
  19. FOSAMAX [Concomitant]
     Active Substance: ALENDRONATE SODIUM
  20. CLOBETASOL [Concomitant]
     Active Substance: CLOBETASOL
  21. IRON FERROUS POLYSACCHARIDE COMPLEX [Concomitant]
  22. COD LIVER OIL [Concomitant]
     Active Substance: COD LIVER OIL
  23. OXYGEN. [Concomitant]
     Active Substance: OXYGEN
  24. PERSANTINE [Suspect]
     Active Substance: DIPYRIDAMOLE
     Indication: CARDIAC STRESS TEST
     Route: 065
  25. REVATIO [Concomitant]
     Active Substance: SILDENAFIL CITRATE
     Dosage: 20 MG QAM, 30 MG MID-DAY, 20 MG QPM
     Route: 048
     Dates: start: 2014
  26. ATORVASTATIN [Concomitant]
     Active Substance: ATORVASTATIN
  27. POTASSIUM CHLORIDE. [Concomitant]
     Active Substance: POTASSIUM CHLORIDE
  28. TACROLIMUS. [Concomitant]
     Active Substance: TACROLIMUS

REACTIONS (6)
  - Pain in jaw [Unknown]
  - Chest pain [Unknown]
  - Oedema peripheral [Unknown]
  - Palpitations [Unknown]
  - Cardiac failure congestive [Unknown]
  - Dizziness [Unknown]
